FAERS Safety Report 4411435-5 (Version None)
Quarter: 2004Q3

REPORT INFORMATION
  Report Type: 
  Country: None (occurrence: None)
  Receive Date: 20040727
  Receipt Date: 20040713
  Transmission Date: 20050211
  Serious: No
  Sender: FDA-Public Use
  Company Number: 04H-083-0267584-00

PATIENT

DRUGS (4)
  1. LEUCOVORIN CALCIUM [Suspect]
     Indication: CHEMOTHERAPY
     Dosage: 100 MG/-2, ONCE, INTRAVENOUS SEE IMAGE
     Route: 042
  2. GEMCITABINE [Suspect]
     Indication: CHEMOTHERAPY
     Dosage: ESCALATING, ONCE, INTRAVENOUS SEE IMAGE
     Route: 042
  3. FLUOROURACIL [Suspect]
     Indication: CHEMOTHERAPY
     Dosage: 400 MG/M-2, ONCE, INTRAVENOUS SEE IMAGE
     Route: 042
  4. OXALIPLATIN [Suspect]
     Indication: CHEMOTHERAPY
     Dosage: 85 MG/M-2, ONCE, INTRAVENOUS SEE IMAGE
     Route: 042

REACTIONS (1)
  - ASTHENIA [None]
